FAERS Safety Report 24878540 (Version 3)
Quarter: 2025Q1

REPORT INFORMATION
  Report Type: Report from Study
  Country: MX (occurrence: MX)
  Receive Date: 20250123
  Receipt Date: 20250226
  Transmission Date: 20250408
  Serious: Yes (Other)
  Sender: TAKEDA
  Company Number: MX-TAKEDA-2025TUS006891

PATIENT
  Age: 24 Year
  Sex: Female

DRUGS (1)
  1. VEDOLIZUMAB [Suspect]
     Active Substance: VEDOLIZUMAB
     Indication: Crohn^s disease

REACTIONS (12)
  - Crohn^s disease [Not Recovered/Not Resolved]
  - Occult blood [Recovering/Resolving]
  - Bacterial infection [Recovering/Resolving]
  - Drug effect less than expected [Unknown]
  - Diarrhoea [Unknown]
  - Pain [Unknown]
  - Weight decreased [Unknown]
  - Fatigue [Recovering/Resolving]
  - Nasopharyngitis [Unknown]
  - Nausea [Recovering/Resolving]
  - Anxiety [Not Recovered/Not Resolved]
  - Depression [Not Recovered/Not Resolved]

NARRATIVE: CASE EVENT DATE: 20241221
